FAERS Safety Report 9922218 (Version 2)
Quarter: 2014Q1

REPORT INFORMATION
  Report Type: Report from Study
  Country: BE (occurrence: BE)
  Receive Date: 20140225
  Receipt Date: 20140309
  Transmission Date: 20141002
  Serious: Yes (Other)
  Sender: FDA-Public Use
  Company Number: PHHY2014BE022063

PATIENT
  Age: 51 Year
  Sex: Female

DRUGS (3)
  1. GILENYA [Suspect]
     Dosage: 0.5 MG, QD
     Route: 048
     Dates: start: 20120817
  2. PENICILLIN [Concomitant]
     Indication: FUNGAL INFECTION
  3. NILSTAT [Concomitant]
     Indication: ORAL FUNGAL INFECTION

REACTIONS (2)
  - Arteriosclerosis [Recovered/Resolved]
  - Pain [Recovered/Resolved]
